APPROVED DRUG PRODUCT: ESTRADIOL VALERATE
Active Ingredient: ESTRADIOL VALERATE
Strength: 10MG/ML
Dosage Form/Route: INJECTABLE;INJECTION
Application: A203723 | Product #001 | TE Code: AO
Applicant: HIKMA FARMACEUTICA PORTUGAL SA
Approved: Apr 21, 2020 | RLD: No | RS: No | Type: RX